FAERS Safety Report 8698046 (Version 2)
Quarter: 2013Q4

REPORT INFORMATION
  Report Type: Spontaneous
  Country: US (occurrence: US)
  Receive Date: 20120802
  Receipt Date: 20131101
  Transmission Date: 20140711
  Serious: Yes (Hospitalization)
  Sender: FDA-Public Use
  Company Number: US-009507513-1207USA011621

PATIENT
  Age: 40 Year
  Sex: Male

DRUGS (3)
  1. SAPHRIS [Suspect]
     Dosage: UNK
     Route: 060
     Dates: start: 20120713
  2. XANAX [Interacting]
  3. GEODON [Interacting]

REACTIONS (3)
  - Loss of consciousness [Recovered/Resolved]
  - Accidental overdose [Recovered/Resolved]
  - Drug interaction [Recovered/Resolved]
